FAERS Safety Report 14879680 (Version 1)
Quarter: 2018Q2

REPORT INFORMATION
  Report Type: Spontaneous
  Country: CZ (occurrence: CZ)
  Receive Date: 20180511
  Receipt Date: 20180511
  Transmission Date: 20180711
  Serious: Yes (Other)
  Sender: FDA-Public Use
  Company Number: CZ-MYLANLABS-2018M1029509

PATIENT
  Age: 28 Year
  Sex: Male

DRUGS (2)
  1. PACLITAXEL. [Suspect]
     Active Substance: PACLITAXEL
     Indication: ANGIOPATHY
     Dosage: UNK
  2. BEVACIZUMAB. [Concomitant]
     Active Substance: BEVACIZUMAB
     Indication: HAEMANGIOMA
     Dosage: 7.5 MG/KG, Q3W
     Dates: start: 201301, end: 201302

REACTIONS (2)
  - Product use in unapproved indication [Unknown]
  - Neuropathy peripheral [Unknown]
